FAERS Safety Report 6811210-8 (Version None)
Quarter: 2010Q2

REPORT INFORMATION
  Report Type: 
  Country: None (occurrence: None)
  Receive Date: 20100630
  Receipt Date: 20090806
  Transmission Date: 20101027
  Serious: No
  Sender: FDA-Public Use
  Company Number: US-AMGEN-KDL359134

PATIENT

DRUGS (1)
  1. PROCRIT [Suspect]
     Indication: RENAL FAILURE CHRONIC
     Dates: end: 20090601

REACTIONS (3)
  - HAEMOGLOBIN DECREASED [None]
  - SERUM FERRITIN ABNORMAL [None]
  - TRANSFERRIN ABNORMAL [None]
